FAERS Safety Report 9535605 (Version 1)
Quarter: 2013Q3

REPORT INFORMATION
  Report Type: Spontaneous
  Country: US (occurrence: US)
  Receive Date: 20130919
  Receipt Date: 20130919
  Transmission Date: 20140515
  Serious: Yes (Hospitalization, Other)
  Sender: FDA-Public Use
  Company Number: US-BIOGENIDEC-2013BI088572

PATIENT
  Sex: Female

DRUGS (2)
  1. AVONEX [Suspect]
     Indication: MULTIPLE SCLEROSIS
     Route: 030
     Dates: start: 20031008
  2. GILENYA [Concomitant]

REACTIONS (12)
  - Lower limb fracture [Recovered/Resolved]
  - Joint injury [Recovered/Resolved]
  - Hip fracture [Recovered/Resolved]
  - Abdominal discomfort [Recovered/Resolved]
  - Vomiting [Recovered/Resolved]
  - Urticaria [Recovered/Resolved]
  - Diarrhoea [Recovered/Resolved]
  - Dizziness [Recovered/Resolved]
  - Asthenia [Recovered/Resolved]
  - Convulsion [Recovered/Resolved]
  - Drug hypersensitivity [Recovered/Resolved]
  - Dysgraphia [Not Recovered/Not Resolved]
